FAERS Safety Report 14162068 (Version 8)
Quarter: 2018Q1

REPORT INFORMATION
  Report Type: Spontaneous
  Country: RU (occurrence: RU)
  Receive Date: 20171106
  Receipt Date: 20180125
  Transmission Date: 20180508
  Serious: Yes (Death, Life-Threatening, Hospitalization, Other)
  Sender: FDA-Public Use
  Company Number: RU-SA-2017SA212870

PATIENT
  Age: 38 Year
  Sex: Male
  Weight: 80 kg

DRUGS (7)
  1. SUPRASTIN [Concomitant]
     Active Substance: CHLOROPYRAMINE HYDROCHLORIDE
     Indication: PREMEDICATION
     Route: 030
     Dates: start: 201710, end: 201710
  2. LEMTRADA [Suspect]
     Active Substance: ALEMTUZUMAB
     Indication: MULTIPLE SCLEROSIS
     Route: 041
     Dates: start: 20171016, end: 20171020
  3. RITUXIMAB. [Concomitant]
     Active Substance: RITUXIMAB
     Indication: MULTIPLE SCLEROSIS RELAPSE
     Route: 042
     Dates: start: 20170118
  4. NATALIZUMAB [Concomitant]
     Active Substance: NATALIZUMAB
  5. SOLU-MEDROL [Concomitant]
     Active Substance: METHYLPREDNISOLONE SODIUM SUCCINATE
     Indication: PREMEDICATION
     Route: 042
     Dates: start: 201710, end: 201710
  6. ACICLOVIR [Concomitant]
     Active Substance: ACYCLOVIR
     Indication: ANTIVIRAL PROPHYLAXIS
     Route: 065
     Dates: start: 2017
  7. PARACETAMOL [Concomitant]
     Active Substance: ACETAMINOPHEN
     Indication: PREMEDICATION
     Route: 048
     Dates: start: 201710, end: 201710

REACTIONS (38)
  - Asthenia [Fatal]
  - Tremor [Fatal]
  - Pyrexia [Fatal]
  - Coma [Fatal]
  - Brain herniation [Unknown]
  - Alanine aminotransferase abnormal [Unknown]
  - Aspartate aminotransferase abnormal [Unknown]
  - Liver disorder [Unknown]
  - Pancreatic disorder [Unknown]
  - Vomiting [Fatal]
  - Lymphocyte count increased [Fatal]
  - Nuclear magnetic resonance imaging abnormal [Fatal]
  - Urinary retention [Unknown]
  - Hepatic enzyme increased [Unknown]
  - Rash [Unknown]
  - Pain [Unknown]
  - Abdominal pain [Unknown]
  - Aqueductal stenosis [Unknown]
  - Headache [Fatal]
  - Brain oedema [Fatal]
  - Pupillary reflex impaired [Fatal]
  - Cerebral ventricle collapse [Unknown]
  - Hydrocephalus [Unknown]
  - Neutrophil count decreased [Fatal]
  - Immunodeficiency [Fatal]
  - Sepsis [Fatal]
  - Ventricular tachycardia [Unknown]
  - CNS ventriculitis [Unknown]
  - Meningitis listeria [Fatal]
  - Hyperthermia [Fatal]
  - Depressed level of consciousness [Fatal]
  - Ependymitis [Unknown]
  - Brain abscess [Unknown]
  - Nausea [Fatal]
  - Brain stem ischaemia [Unknown]
  - Brain stem haemorrhage [Unknown]
  - Relapsing-remitting multiple sclerosis [Unknown]
  - Procalcitonin decreased [Unknown]

NARRATIVE: CASE EVENT DATE: 2017
